FAERS Safety Report 6334172-9 (Version None)
Quarter: 2009Q3

REPORT INFORMATION
  Report Type: 
  Country: None (occurrence: None)
  Receive Date: 20090829
  Receipt Date: 20090715
  Transmission Date: 20100115
  Serious: No
  Sender: FDA-Public Use
  Company Number: US-ABBOTT-09P-163-0585791-00

PATIENT
  Sex: Male
  Weight: 99.88 kg

DRUGS (2)
  1. SIMCOR [Suspect]
     Indication: LOW DENSITY LIPOPROTEIN INCREASED
     Dosage: 500/20 MG EVERY NIGHT
     Dates: start: 20090701
  2. UNKNOWN ALLERGY MEDICATION [Concomitant]
     Indication: HOUSE DUST ALLERGY
     Dosage: PRN FOR DUST ALLERGY

REACTIONS (7)
  - ABDOMINAL PAIN UPPER [None]
  - BURNING SENSATION [None]
  - CHILLS [None]
  - COLD SWEAT [None]
  - FLUSHING [None]
  - NAUSEA [None]
  - PRURITUS [None]
